FAERS Safety Report 16051193 (Version 1)
Quarter: 2019Q2

REPORT INFORMATION
  Report Type: Spontaneous
  Country: US (occurrence: US)
  Receive Date: 20190307
  Receipt Date: 20190307
  Transmission Date: 20190711
  Serious: Yes (Other)
  Sender: FDA-Public Use
  Company Number: None

PATIENT
  Age: 83 Year
  Sex: Female
  Weight: 81.9 kg

DRUGS (19)
  1. DEXAMETHASONE. [Concomitant]
     Active Substance: DEXAMETHASONE
  2. CRANBERRY CONCENTRATION/VITAMIN C [Concomitant]
  3. LOSARTAN POTASSIUM. [Concomitant]
     Active Substance: LOSARTAN POTASSIUM
  4. LINZESS [Concomitant]
     Active Substance: LINACLOTIDE
  5. PHILIPS COLON HEALTH [Concomitant]
  6. MULTIVITAMIN ADULT [Concomitant]
  7. PREVACID [Concomitant]
     Active Substance: LANSOPRAZOLE
  8. OSTEO BI-FLEX REGULAR STRENGTH [Concomitant]
  9. XGEVA [Concomitant]
     Active Substance: DENOSUMAB
  10. AFINITOR [Suspect]
     Active Substance: EVEROLIMUS
     Indication: BREAST CANCER
     Route: 048
     Dates: start: 20190108
  11. COLACE [Concomitant]
     Active Substance: DOCUSATE SODIUM
  12. XARELTO [Concomitant]
     Active Substance: RIVAROXABAN
  13. DIPHENHYDRAMINE HCL [Concomitant]
     Active Substance: DIPHENHYDRAMINE HYDROCHLORIDE
  14. MAXITROL [Concomitant]
     Active Substance: DEXAMETHASONE\NEOMYCIN SULFATE\POLYMYXIN B SULFATE
  15. SIMVASTATIN. [Concomitant]
     Active Substance: SIMVASTATIN
  16. APPLE CIDER VINEGAR [Concomitant]
     Active Substance: APPLE CIDER VINEGAR
  17. ALEVE PM [Concomitant]
     Active Substance: DIPHENHYDRAMINE HYDROCHLORIDE\NAPROXEN SODIUM
  18. METOPROLOL TARTRATE. [Concomitant]
     Active Substance: METOPROLOL TARTRATE
  19. ONDANSETRON [Concomitant]
     Active Substance: ONDANSETRON

REACTIONS (1)
  - Headache [None]
